FAERS Safety Report 15899878 (Version 1)
Quarter: 2019Q1

REPORT INFORMATION
  Report Type: Report from Study
  Country: None (occurrence: CO)
  Receive Date: 20190201
  Receipt Date: 20190201
  Transmission Date: 20190417
  Serious: Yes (Other)
  Sender: FDA-Public Use
  Company Number: CO-ABBVIE-19K-036-2646464-00

PATIENT
  Age: 29 Year
  Sex: Female

DRUGS (2)
  1. HUMIRA [Suspect]
     Active Substance: ADALIMUMAB
     Indication: PSORIATIC ARTHROPATHY
     Dosage: HUMIRA AC
     Route: 058
     Dates: end: 20181129
  2. HUMIRA [Suspect]
     Active Substance: ADALIMUMAB
     Indication: PSORIATIC ARTHROPATHY
     Route: 058
     Dates: start: 20140905

REACTIONS (9)
  - Dysphonia [Not Recovered/Not Resolved]
  - Influenza [Not Recovered/Not Resolved]
  - Bronchitis [Not Recovered/Not Resolved]
  - Oropharyngeal plaque [Not Recovered/Not Resolved]
  - Pyrexia [Not Recovered/Not Resolved]
  - Tonsillitis [Not Recovered/Not Resolved]
  - Asphyxia [Not Recovered/Not Resolved]
  - Influenza [Recovered/Resolved]
  - Pharyngitis [Not Recovered/Not Resolved]

NARRATIVE: CASE EVENT DATE: 20181213
